FAERS Safety Report 10472319 (Version 1)
Quarter: 2014Q3

REPORT INFORMATION
  Report Type: Spontaneous
  Country: US (occurrence: None)
  Receive Date: 20140923
  Receipt Date: 20140923
  Transmission Date: 20150326
  Serious: No
  Sender: FDA-Public Use
  Company Number: None

PATIENT
  Age: 68 Year
  Sex: Male

DRUGS (1)
  1. ENBREL [Suspect]
     Active Substance: ETANERCEPT
     Indication: PSORIATIC ARTHROPATHY
     Dosage: 50MG ?QW?SQ
     Route: 058
     Dates: start: 20140425

REACTIONS (3)
  - Sinus disorder [None]
  - Hypersensitivity [None]
  - Burning sensation [None]

NARRATIVE: CASE EVENT DATE: 20140918
